FAERS Safety Report 7557027-0 (Version None)
Quarter: 2011Q2

REPORT INFORMATION
  Report Type: 
  Country: None (occurrence: None)
  Receive Date: 20110609
  Receipt Date: 20110606
  Transmission Date: 20111010
  Serious: Yes (Hospitalization)
  Sender: FDA-Public Use
  Company Number: 2010SP029130

PATIENT
  Age: 30 Year
  Sex: Female
  Weight: 65.7716 kg

DRUGS (1)
  1. NUVARING [Suspect]
     Indication: CONTRACEPTION
     Dates: start: 20070601, end: 20080524

REACTIONS (9)
  - INJURY [None]
  - THROMBOSIS [None]
  - ABORTION INDUCED [None]
  - DRUG EXPOSURE DURING PREGNANCY [None]
  - DEEP VEIN THROMBOSIS [None]
  - SWELLING [None]
  - PREGNANCY [None]
  - PAIN [None]
  - NO THERAPEUTIC RESPONSE [None]
